FAERS Safety Report 7808544-7 (Version None)
Quarter: 2011Q4

REPORT INFORMATION
  Report Type: 
  Country: None (occurrence: None)
  Receive Date: 20111012
  Receipt Date: 20111006
  Transmission Date: 20120403
  Serious: Yes (Death)
  Sender: FDA-Public Use
  Company Number: IE-AMGEN-IRLSP2011039951

PATIENT
  Age: 60 Year
  Sex: Male

DRUGS (9)
  1. COMBIVENT [Concomitant]
  2. LOSEC                              /00661201/ [Concomitant]
     Dosage: 20 UNK, UNK
     Route: 048
  3. MST                                /00036302/ [Concomitant]
     Dosage: 10 UNK, UNK
  4. OXYGEN [Concomitant]
  5. PREDNISOLONE [Concomitant]
     Dosage: 15 MG, UNK
     Route: 048
  6. SEPTRA [Concomitant]
     Dosage: 480 MG, UNK
     Route: 048
  7. ORAMORPH SR [Concomitant]
     Dosage: UNK, PRN
  8. ANTINEOPLASTIC AGENTS [Concomitant]
  9. NEULASTA [Suspect]
     Indication: CHEMOTHERAPY
     Dosage: 6 MG, Q3WK
     Route: 058
     Dates: start: 20100101, end: 20110718

REACTIONS (2)
  - SMALL CELL LUNG CANCER METASTATIC [None]
  - RESPIRATORY FAILURE [None]
